FAERS Safety Report 4269027-7 (Version None)
Quarter: 2004Q1

REPORT INFORMATION
  Report Type: 
  Country: None (occurrence: None)
  Receive Date: 20040112
  Receipt Date: 20040112
  Transmission Date: 20041129
  Serious: Yes (Disabling)
  Sender: FDA-Public Use
  Company Number: None

PATIENT
  Age: 56 Year
  Sex: Female
  Weight: 68.0396 kg

DRUGS (1)
  1. PROZAC [Suspect]
     Indication: BIPOLAR DISORDER
     Dosage: 2 DAILY
     Dates: start: 19850401, end: 20040101

REACTIONS (3)
  - LOSS OF EMPLOYMENT [None]
  - MANIA [None]
  - URTICARIA [None]
